FAERS Safety Report 4368101-4 (Version None)
Quarter: 2004Q2

REPORT INFORMATION
  Report Type: 
  Country: None (occurrence: None)
  Receive Date: 20040602
  Receipt Date: 20030919
  Transmission Date: 20050107
  Serious: Yes (Hospitalization)
  Sender: FDA-Public Use
  Company Number: US-AMGEN-US048391

PATIENT
  Sex: Female

DRUGS (22)
  1. ENBREL [Suspect]
     Indication: RHEUMATOID ARTHRITIS
     Route: 058
     Dates: start: 20001103, end: 20020601
  2. KLONOPIN [Concomitant]
  3. SINGULAIR [Concomitant]
  4. PREVACID [Concomitant]
  5. AZMACORT [Concomitant]
  6. ALBUTEROL [Concomitant]
  7. ARAVA [Concomitant]
  8. VISTARIL [Concomitant]
  9. DILAUDID [Concomitant]
  10. SKELAXIN [Concomitant]
  11. ENTEX CAP [Concomitant]
  12. LOTENSIN [Concomitant]
  13. LEVAQUIN [Concomitant]
  14. ZANAFLEX [Concomitant]
  15. PROZAC [Concomitant]
  16. NASONEX [Concomitant]
  17. TRAZODONE HCL [Concomitant]
  18. HYDROCODONE [Concomitant]
  19. PREDNISONE TAB [Concomitant]
  20. DURAGESIC [Concomitant]
  21. PLAVIX [Concomitant]
  22. COLACE [Concomitant]

REACTIONS (5)
  - CEREBROVASCULAR ACCIDENT [None]
  - CONVULSION [None]
  - DYSKINESIA [None]
  - HYPOKALAEMIA [None]
  - TRANSIENT ISCHAEMIC ATTACK [None]
